FAERS Safety Report 23465767 (Version 3)
Quarter: 2025Q1

REPORT INFORMATION
  Report Type: Spontaneous
  Country: SK (occurrence: SK)
  Receive Date: 20240201
  Receipt Date: 20250225
  Transmission Date: 20250409
  Serious: Yes (Other)
  Sender: JOHNSON AND JOHNSON
  Company Number: SK-JNJFOC-20240168392

PATIENT
  Age: 33 Year
  Sex: Male

DRUGS (10)
  1. SPRAVATO [Suspect]
     Active Substance: ESKETAMINE
     Indication: Depression
     Route: 045
  2. SPRAVATO [Suspect]
     Active Substance: ESKETAMINE
     Route: 045
  3. PAROXETINE [Concomitant]
     Active Substance: PAROXETINE
     Route: 065
  4. PAROXETINE [Concomitant]
     Active Substance: PAROXETINE
     Route: 065
  5. PAROXETINE [Concomitant]
     Active Substance: PAROXETINE
     Route: 048
  6. MOCLOBEMIDE [Concomitant]
     Active Substance: MOCLOBEMIDE
     Route: 065
  7. MOCLOBEMIDE [Concomitant]
     Active Substance: MOCLOBEMIDE
     Route: 065
  8. MOCLOBEMIDE [Concomitant]
     Active Substance: MOCLOBEMIDE
     Route: 048
  9. QUETIAPINE [Concomitant]
     Active Substance: QUETIAPINE
     Route: 048
  10. ZOLPIDEM [Concomitant]
     Active Substance: ZOLPIDEM TARTRATE
     Route: 065

REACTIONS (9)
  - Hallucination, visual [Recovered/Resolved]
  - Psychiatric symptom [Recovered/Resolved]
  - Hypertension [Unknown]
  - Dissociation [Recovered/Resolved]
  - Euphoric mood [Recovered/Resolved]
  - Sedation [Recovered/Resolved]
  - Vertigo [Unknown]
  - Nausea [Unknown]
  - Diplopia [Unknown]
